FAERS Safety Report 7222751-6 (Version None)
Quarter: 2011Q1

REPORT INFORMATION
  Report Type: 
  Country: None (occurrence: None)
  Receive Date: 20110112
  Receipt Date: 20080826
  Transmission Date: 20110831
  Serious: Yes (Hospitalization, Other)
  Sender: FDA-Public Use
  Company Number: PHHY2008FR19426

PATIENT
  Sex: Male

DRUGS (12)
  1. COTAREG [Suspect]
     Indication: HYPERTENSION
     Dosage: 1 DF, QD
     Dates: end: 20080226
  2. INEGY [Concomitant]
  3. AMAREL [Concomitant]
  4. ZOLTUM [Concomitant]
  5. TENORMIN [Concomitant]
  6. PLAVIX [Concomitant]
  7. LEXOMIL [Concomitant]
  8. MEDIATENSYL [Concomitant]
  9. ASPIRIN [Concomitant]
  10. HEXAQUINE [Concomitant]
  11. OMACOR [Concomitant]
  12. TANAKAN [Concomitant]

REACTIONS (15)
  - APPENDICECTOMY [None]
  - DECREASED APPETITE [None]
  - WEIGHT DECREASED [None]
  - PROTEIN TOTAL INCREASED [None]
  - FISTULA [None]
  - VOMITING [None]
  - BLOOD CREATININE INCREASED [None]
  - BLOOD UREA INCREASED [None]
  - ILEOSTOMY [None]
  - NAUSEA [None]
  - GASTROINTESTINAL STOMA COMPLICATION [None]
  - RENAL FAILURE ACUTE [None]
  - DEHYDRATION [None]
  - GENERAL PHYSICAL HEALTH DETERIORATION [None]
  - HAEMOCONCENTRATION [None]
